FAERS Safety Report 13189345 (Version 4)
Quarter: 2017Q2

REPORT INFORMATION
  Report Type: Report from Study
  Country: US (occurrence: US)
  Receive Date: 20170206
  Receipt Date: 20170509
  Transmission Date: 20170830
  Serious: Yes (Hospitalization, Other)
  Sender: FDA-Public Use
  Company Number: US-PFIZER INC-2016531635

PATIENT
  Age: 68 Year
  Sex: Female

DRUGS (3)
  1. LETROZOLE. [Suspect]
     Active Substance: LETROZOLE
     Dosage: UNK
  2. FASLODEX [Suspect]
     Active Substance: FULVESTRANT
     Dosage: UNK
  3. IBRANCE [Suspect]
     Active Substance: PALBOCICLIB
     Indication: BREAST CANCER
     Dosage: 125 MG, DAILY
     Route: 048
     Dates: start: 20161108

REACTIONS (11)
  - Oedema peripheral [Recovered/Resolved]
  - Back pain [Unknown]
  - Pruritus [Unknown]
  - Dyspnoea [Unknown]
  - Abdominal distension [Unknown]
  - Cardiac failure [Unknown]
  - Abdominal discomfort [Recovering/Resolving]
  - Constipation [Unknown]
  - Pulmonary oedema [Unknown]
  - Decreased appetite [Unknown]
  - Flank pain [Unknown]

NARRATIVE: CASE EVENT DATE: 2016
